FAERS Safety Report 20454352 (Version 1)
Quarter: 2022Q1

REPORT INFORMATION
  Report Type: Report from Study
  Country: US (occurrence: US)
  Receive Date: 20220210
  Receipt Date: 20220210
  Transmission Date: 20220423
  Serious: Yes (Hospitalization, Other)
  Sender: FDA-Public Use
  Company Number: US-ABBVIE-22K-163-4268661-00

PATIENT
  Sex: Male
  Weight: 78.996 kg

DRUGS (1)
  1. CREON [Suspect]
     Active Substance: PANCRELIPASE AMYLASE\PANCRELIPASE LIPASE\PANCRELIPASE PROTEASE
     Indication: Pancreatic carcinoma
     Dosage: 2 CAPSULES IN THE MORNING, 2 CAPSULES IN THE EVENING, AND 1 CAPSULE DURING SNACKS
     Route: 048
     Dates: start: 2020

REACTIONS (2)
  - Lung neoplasm malignant [Not Recovered/Not Resolved]
  - Inguinal hernia [Unknown]
